FAERS Safety Report 9097866 (Version 2)
Quarter: 2013Q1

REPORT INFORMATION
  Report Type: Spontaneous
  Country: US (occurrence: US)
  Receive Date: 20130212
  Receipt Date: 20130225
  Transmission Date: 20140127
  Serious: Yes (Hospitalization, Other)
  Sender: FDA-Public Use
  Company Number: US-BRISTOL-MYERS SQUIBB COMPANY-17366022

PATIENT
  Age: 60 Year
  Sex: Male
  Weight: 120 kg

DRUGS (8)
  1. METFORMIN HCL [Suspect]
     Indication: DIABETES MELLITUS
     Route: 048
     Dates: start: 20100725
  2. ALBUTEROL [Concomitant]
     Dosage: 1DF = 1PUFF
     Dates: start: 1995
  3. ATENOLOL [Concomitant]
     Route: 048
     Dates: start: 1995
  4. FISH OIL [Concomitant]
     Route: 048
     Dates: start: 2000
  5. FUROSEMIDE [Concomitant]
     Route: 048
     Dates: start: 201110, end: 20120716
  6. MULTIVITAMINS [Concomitant]
     Route: 048
     Dates: start: 1995
  7. NORVASC [Concomitant]
  8. SYMBICORT [Concomitant]
     Dosage: 1DF = 160MICROGRAM/4.5MICROGRAM
     Dates: start: 2009

REACTIONS (1)
  - Atrial fibrillation [Recovered/Resolved]
